FAERS Safety Report 8682577 (Version 4)
Quarter: 2013Q1

REPORT INFORMATION
  Report Type: Spontaneous
  Country: JP (occurrence: JP)
  Receive Date: 20120725
  Receipt Date: 20130228
  Transmission Date: 20140127
  Serious: Yes (Hospitalization, Other)
  Sender: FDA-Public Use
  Company Number: JP-B.I. PHARMACEUTICALS,INC./RIDGEFIELD-2012-BP-16110NB

PATIENT
  Age: 83 Year
  Sex: Female

DRUGS (3)
  1. PRAZAXA [Suspect]
     Indication: ATRIAL FIBRILLATION
     Dosage: 220 MG
     Route: 048
     Dates: start: 201202, end: 20120703
  2. VASOLAN [Suspect]
     Route: 048
     Dates: end: 20120703
  3. BAYASPIRIN [Suspect]
     Route: 048
     Dates: end: 20120703

REACTIONS (10)
  - Dehydration [Unknown]
  - Acute prerenal failure [Unknown]
  - Gastrointestinal haemorrhage [Recovered/Resolved]
  - Shock haemorrhagic [Recovered/Resolved]
  - Altered state of consciousness [Recovered/Resolved]
  - Hypotension [Unknown]
  - Bradycardia [Unknown]
  - Metabolic acidosis [Unknown]
  - Hyperkalaemia [Unknown]
  - Coagulopathy [Unknown]
